FAERS Safety Report 18489777 (Version 1)
Quarter: 2020Q4

REPORT INFORMATION
  Report Type: Spontaneous
  Country: US (occurrence: US)
  Receive Date: 20201110
  Receipt Date: 20201110
  Transmission Date: 20210114
  Serious: No
  Sender: FDA-Public Use
  Company Number: None

PATIENT
  Age: 68 Year
  Sex: Male
  Weight: 57.15 kg

DRUGS (22)
  1. EVEROLIMUS. [Suspect]
     Active Substance: EVEROLIMUS
     Indication: SKIN CANCER
     Route: 048
     Dates: start: 20201110
  2. FERAHEME [Concomitant]
     Active Substance: FERUMOXYTOL NON-STOICHIOMETRIC MAGNETITE
  3. METHOCARBAMOL. [Concomitant]
     Active Substance: METHOCARBAMOL
  4. STOOL SOFTENER (DOCUSATE) [Concomitant]
     Active Substance: DOCUSATE
  5. LINZESS [Concomitant]
     Active Substance: LINACLOTIDE
  6. CHLOROFRESH [Concomitant]
  7. RETACRIT [Concomitant]
     Active Substance: EPOETIN ALFA-EPBX
  8. DEXAMETHASONE 0.5 MG/5 ML ORAL SOL [Concomitant]
  9. ONDANSETRON HCL [Concomitant]
     Active Substance: ONDANSETRON HYDROCHLORIDE
  10. D3-50 [Concomitant]
  11. STAMETS7 [Concomitant]
  12. ICONIC MINERALS [Concomitant]
  13. HYDROCODONE-ACETAMINOPHEN [Concomitant]
     Active Substance: ACETAMINOPHEN\HYDROCODONE
  14. BACTRIM [Concomitant]
     Active Substance: SULFAMETHOXAZOLE\TRIMETHOPRIM
  15. LOSARTAN POTASSIUM. [Concomitant]
     Active Substance: LOSARTAN POTASSIUM
  16. PRAVASTATIN SODIUM. [Concomitant]
     Active Substance: PRAVASTATIN SODIUM
  17. TURKEY TAIL MUSHROOMS [Concomitant]
  18. LIDOCAINE-PRILOCAINE [Concomitant]
     Active Substance: LIDOCAINE\PRILOCAINE
  19. ESSIACT [Concomitant]
  20. PREDNISOLONE ACETATE. [Concomitant]
     Active Substance: PREDNISOLONE ACETATE
  21. MULTIVITAMIN ADULTS 50+ [Concomitant]
  22. VITAMIN D [Concomitant]
     Active Substance: VITAMIN D NOS

REACTIONS (1)
  - Nausea [None]

NARRATIVE: CASE EVENT DATE: 20201110
